FAERS Safety Report 8731091 (Version 2)
Quarter: 2012Q4

REPORT INFORMATION
  Report Type: 
  Country: US (occurrence: US)
  Receive Date: 20120820
  Receipt Date: 20120925
  Transmission Date: 20130627
  Serious: No
  Sender: FDA-Public Use
  Company Number: US-BIOGENIDEC-2012BI030726

PATIENT
  Age: 54 Year
  Sex: Female

DRUGS (1)
  1. TYSABRI [Suspect]
     Indication: MULTIPLE SCLEROSIS
     Route: 042
     Dates: start: 20110911, end: 20120425

REACTIONS (7)
  - Non-alcoholic steatohepatitis [Not Recovered/Not Resolved]
  - Abdominal pain lower [Unknown]
  - Fluid intake reduced [Unknown]
  - Gastric banding [Unknown]
  - Hepatic neoplasm [Unknown]
  - Hepatitis [Unknown]
  - Hepatic fibrosis [Unknown]
